FAERS Safety Report 8195891-5 (Version None)
Quarter: 2012Q1

REPORT INFORMATION
  Report Type: 
  Country: None (occurrence: None)
  Receive Date: 20120308
  Receipt Date: 20120227
  Transmission Date: 20120608
  Serious: Yes (Hospitalization)
  Sender: FDA-Public Use
  Company Number: US-FRI-1000028685

PATIENT
  Age: 7 Year
  Sex: Male

DRUGS (1)
  1. DILTIAZEM HCL [Suspect]

REACTIONS (2)
  - UNEVALUABLE EVENT [None]
  - MULTI-ORGAN FAILURE [None]
